FAERS Safety Report 12632079 (Version 3)
Quarter: 2016Q3

REPORT INFORMATION
  Report Type: Spontaneous
  Country: US (occurrence: US)
  Receive Date: 20160808
  Receipt Date: 20160824
  Transmission Date: 20161109
  Serious: No
  Sender: FDA-Public Use
  Company Number: US-BEH-2016061854

PATIENT
  Sex: Female
  Weight: 66.68 kg

DRUGS (27)
  1. EPIPEN [Concomitant]
     Active Substance: EPINEPHRINE
  2. AZATHIOPRINE. [Concomitant]
     Active Substance: AZATHIOPRINE
  3. VITAMIN D [Concomitant]
     Active Substance: CHOLECALCIFEROL
  4. APRISO [Concomitant]
     Active Substance: MESALAMINE
  5. FERROUS SULFATE. [Concomitant]
     Active Substance: FERROUS SULFATE
  6. TRAMADOL. [Concomitant]
     Active Substance: TRAMADOL
  7. CANASA [Concomitant]
     Active Substance: MESALAMINE
  8. HIZENTRA [Suspect]
     Active Substance: HUMAN IMMUNOGLOBULIN G
     Indication: IMMUNODEFICIENCY COMMON VARIABLE
     Dosage: 7 G, QW
     Route: 058
     Dates: start: 201503
  9. LOPERAMIDE [Concomitant]
     Active Substance: LOPERAMIDE
  10. PROMETHAZINE [Concomitant]
     Active Substance: PROMETHAZINE\PROMETHAZINE HYDROCHLORIDE
  11. SUMATRIPTAN SUCCINATE. [Concomitant]
     Active Substance: SUMATRIPTAN SUCCINATE
  12. FISH OIL OMEGA-3 [Concomitant]
  13. XYZAL [Concomitant]
     Active Substance: LEVOCETIRIZINE DIHYDROCHLORIDE
  14. OMEPRAZOLE. [Concomitant]
     Active Substance: OMEPRAZOLE
  15. REMICADE [Concomitant]
     Active Substance: INFLIXIMAB
  16. VITAMIN B12 [Concomitant]
     Active Substance: CYANOCOBALAMIN
  17. PROBIOTIC+ACIDOPHILUS [Concomitant]
  18. DIPHENHYDRAMINE. [Concomitant]
     Active Substance: DIPHENHYDRAMINE
  19. L-M-X [Concomitant]
  20. FUROSEMIDE. [Concomitant]
     Active Substance: FUROSEMIDE
  21. TOPICORT [Concomitant]
     Active Substance: DESOXIMETASONE
  22. ADVAIR HFA [Concomitant]
     Active Substance: FLUTICASONE PROPIONATE\SALMETEROL XINAFOATE
  23. NORCO [Concomitant]
     Active Substance: ACETAMINOPHEN\HYDROCODONE BITARTRATE
  24. SIMETHICONE (DIMETHICONE) [Concomitant]
     Active Substance: DIMETHICONE
  25. POTASSIUM GLUCONATE [Concomitant]
     Active Substance: POTASSIUM GLUCONATE
  26. DOXYCYCLINE. [Concomitant]
     Active Substance: DOXYCYCLINE
  27. CALCIUM CITRATE-VITAMIN D3 [Concomitant]

REACTIONS (1)
  - Urinary tract infection [Unknown]
